FAERS Safety Report 4587279-0 (Version None)
Quarter: 2005Q1

REPORT INFORMATION
  Report Type: 
  Country: None (occurrence: None)
  Receive Date: 20050218
  Receipt Date: 20050111
  Transmission Date: 20050727
  Serious: Yes (Death, Hospitalization)
  Sender: FDA-Public Use
  Company Number: BE-AMGEN-UK107142

PATIENT
  Age: 68 Year
  Sex: Female

DRUGS (13)
  1. NEUPOGEN [Suspect]
     Indication: BONE MARROW TRANSPLANT
     Route: 058
  2. CISPLATIN [Concomitant]
     Route: 065
  3. CYTARABINE [Concomitant]
     Route: 065
  4. DEXAMETHASONE [Concomitant]
     Route: 065
  5. MITOXANTRONE [Concomitant]
     Route: 065
  6. IFOSFAMIDE [Concomitant]
     Route: 065
  7. ETOPOSIDE [Concomitant]
     Route: 065
  8. METHOTREXATE [Concomitant]
     Route: 037
  9. HYDROCORTISONE [Concomitant]
     Route: 065
  10. CYTARABINE [Concomitant]
     Route: 065
  11. CARMUSTINE [Concomitant]
     Route: 065
  12. MELPHALAN [Concomitant]
     Route: 065
  13. STEM CELLS [Concomitant]
     Route: 041

REACTIONS (22)
  - BLOOD CREATININE INCREASED [None]
  - BLOOD UREA INCREASED [None]
  - CAPILLARY LEAK SYNDROME [None]
  - DIALYSIS [None]
  - DRUG INEFFECTIVE [None]
  - FLUID OVERLOAD [None]
  - HAEMODYNAMIC INSTABILITY [None]
  - HEART RATE INCREASED [None]
  - HEPATITIS [None]
  - HYPOTENSION [None]
  - HYPOXIA [None]
  - LUNG INFILTRATION [None]
  - METABOLIC ACIDOSIS [None]
  - OEDEMA PERIPHERAL [None]
  - PLEURAL EFFUSION [None]
  - PULMONARY CONGESTION [None]
  - PYREXIA [None]
  - RESPIRATORY ACIDOSIS [None]
  - RESPIRATORY RATE DECREASED [None]
  - SOMNOLENCE [None]
  - URINE OUTPUT DECREASED [None]
  - WEIGHT INCREASED [None]
